FAERS Safety Report 5322899-7 (Version None)
Quarter: 2007Q2

REPORT INFORMATION
  Report Type: 
  Country: None (occurrence: None)
  Receive Date: 20070511
  Receipt Date: 20070502
  Transmission Date: 20071010
  Serious: Yes (Other)
  Sender: FDA-Public Use
  Company Number: US-PFIZER INC-2007037013

PATIENT
  Sex: Female
  Weight: 124.7 kg

DRUGS (7)
  1. LIPITOR [Suspect]
     Indication: BLOOD CHOLESTEROL INCREASED
  2. PREMARIN [Concomitant]
  3. BENAZEPRIL HYDROCHLORIDE [Concomitant]
  4. TOPROL-XL [Concomitant]
  5. CLOPIDOGREL [Concomitant]
  6. LISINOPRIL [Concomitant]
  7. DICLOFENAC [Concomitant]

REACTIONS (5)
  - ABDOMINAL DISTENSION [None]
  - GASTRIC DISORDER [None]
  - INSOMNIA [None]
  - MYOCARDIAL INFARCTION [None]
  - NAUSEA [None]
